FAERS Safety Report 13680039 (Version 1)
Quarter: 2017Q2

REPORT INFORMATION
  Report Type: Spontaneous
  Country: US (occurrence: US)
  Receive Date: 20170622
  Receipt Date: 20170622
  Transmission Date: 20170830
  Serious: Yes (Other)
  Sender: FDA-Public Use
  Company Number: US-PFIZER INC-2017264968

PATIENT
  Age: 37 Year
  Sex: Female

DRUGS (1)
  1. BOSULIF [Suspect]
     Active Substance: BOSUTINIB MONOHYDRATE
     Dosage: UNK
     Dates: start: 201706

REACTIONS (4)
  - Feeling hot [Unknown]
  - Blister [Unknown]
  - Diarrhoea [Unknown]
  - Neutropenia [Unknown]
